FAERS Safety Report 8967786 (Version 1)
Quarter: 2012Q4

REPORT INFORMATION
  Report Type: Spontaneous
  Country: US (occurrence: None)
  Receive Date: 20121213
  Receipt Date: 20121213
  Transmission Date: 20130627
  Serious: No
  Sender: FDA-Public Use
  Company Number: None

PATIENT
  Age: 32 Year
  Sex: Female
  Weight: 94.8 kg

DRUGS (1)
  1. MIRENA 52 MG/1U BAYER [Suspect]
     Indication: BIRTH CONTROL
     Route: 015

REACTIONS (8)
  - Benign intracranial hypertension [None]
  - Papilloedema [None]
  - Tinnitus [None]
  - Dizziness [None]
  - Nausea [None]
  - Blindness transient [None]
  - Balance disorder [None]
  - Headache [None]
